FAERS Safety Report 8601940-X (Version None)
Quarter: 2012Q3

REPORT INFORMATION
  Report Type: 
  Country: None (occurrence: None)
  Receive Date: 20120817
  Receipt Date: 20120615
  Transmission Date: 20120928
  Serious: No
  Sender: FDA-Public Use
  Company Number: US-BRISTOL-MYERS SQUIBB COMPANY-16660540

PATIENT
  Age: 57 Year
  Sex: Female

DRUGS (1)
  1. SPRYCEL [Suspect]
     Indication: CHRONIC MYELOID LEUKAEMIA
     Dosage: STARTED AT 100 MG; DOSE REDUCED TO 70 MG ON 10JAN2012;FROM 17-APR-2012 TO 01-MAY-2012
     Route: 048
     Dates: start: 20101121

REACTIONS (1)
  - HERPES ZOSTER [None]
